FAERS Safety Report 6327624-9 (Version None)
Quarter: 2009Q3

REPORT INFORMATION
  Report Type: 
  Country: None (occurrence: None)
  Receive Date: 20090825
  Receipt Date: 20090812
  Transmission Date: 20100115
  Serious: Yes (Hospitalization, Other)
  Sender: FDA-Public Use
  Company Number: US-ELI_LILLY_AND_COMPANY-US200908003528

PATIENT
  Sex: Female

DRUGS (2)
  1. FORTEO [Suspect]
     Dosage: 20 UG, UNK
  2. COUMADIN [Concomitant]

REACTIONS (17)
  - ASTHENIA [None]
  - BONE PAIN [None]
  - CERVICAL SPINAL STENOSIS [None]
  - COMPRESSION FRACTURE [None]
  - ECCHYMOSIS [None]
  - FALL [None]
  - INTERNATIONAL NORMALISED RATIO INCREASED [None]
  - KYPHOSIS [None]
  - LUMBAR VERTEBRAL FRACTURE [None]
  - OSTEOARTHRITIS [None]
  - OSTEOPOROSIS [None]
  - PAIN [None]
  - PAIN IN EXTREMITY [None]
  - SPINAL CORD HAEMORRHAGE [None]
  - SPINAL CORD INJURY [None]
  - SYRINGOMYELIA [None]
  - THORACIC VERTEBRAL FRACTURE [None]
